FAERS Safety Report 5639562-5 (Version None)
Quarter: 2008Q1

REPORT INFORMATION
  Report Type: 
  Country: None (occurrence: None)
  Receive Date: 20080226
  Receipt Date: 20080214
  Transmission Date: 20080703
  Serious: Yes (Other)
  Sender: FDA-Public Use
  Company Number: CA-PFIZER INC-2008016753

PATIENT
  Age: 57 Year
  Sex: Female

DRUGS (3)
  1. CHANTIX [Suspect]
  2. LYRICA [Suspect]
  3. NORVASC [Concomitant]

REACTIONS (5)
  - DEPRESSION [None]
  - FLATULENCE [None]
  - HEADACHE [None]
  - NAUSEA [None]
  - WEIGHT INCREASED [None]
